FAERS Safety Report 10188272 (Version 1)
Quarter: 2014Q2

REPORT INFORMATION
  Report Type: Report from Study
  Country: US (occurrence: US)
  Receive Date: 20140522
  Receipt Date: 20140522
  Transmission Date: 20141212
  Serious: Yes (Other)
  Sender: FDA-Public Use
  Company Number: US-PURDUE-USA-2014-0114095

PATIENT
  Sex: Male

DRUGS (4)
  1. OXY CR TAB [Suspect]
     Indication: BACK PAIN
     Dosage: 60 MG, Q12H
     Route: 048
     Dates: start: 201303, end: 201402
  2. OXY CR TAB [Suspect]
     Indication: PAIN IN EXTREMITY
     Dosage: 60 MG, Q12H
     Route: 048
     Dates: end: 201402
  3. MORPHINE SULFATE (SIMILAR TO NDA 19-516) [Suspect]
     Indication: BACK PAIN
  4. MORPHINE SULFATE (SIMILAR TO NDA 19-516) [Suspect]
     Indication: PAIN IN EXTREMITY

REACTIONS (2)
  - Tooth disorder [Unknown]
  - Toothache [Not Recovered/Not Resolved]
